FAERS Safety Report 17398650 (Version 1)
Quarter: 2020Q1

REPORT INFORMATION
  Report Type: Report from Study
  Country: None (occurrence: US)
  Receive Date: 20200210
  Receipt Date: 20200210
  Transmission Date: 20200409
  Serious: Yes (Hospitalization)
  Sender: FDA-Public Use
  Company Number: US-ABBVIE-20P-163-3262279-00

PATIENT
  Age: 65 Year
  Sex: Female

DRUGS (6)
  1. AZACITIDINE. [Concomitant]
     Active Substance: AZACITIDINE
     Indication: ACUTE MYELOID LEUKAEMIA
     Route: 048
     Dates: start: 20200110
  2. VENETOCLAX. [Suspect]
     Active Substance: VENETOCLAX
     Indication: ACUTE MYELOID LEUKAEMIA
     Dosage: CYCLE 2 DAY 1
     Route: 048
     Dates: start: 20200110, end: 20200110
  3. VENETOCLAX. [Suspect]
     Active Substance: VENETOCLAX
     Dosage: CYCLE 2 DAY 2
     Route: 048
     Dates: start: 20200111, end: 20200111
  4. VENETOCLAX. [Suspect]
     Active Substance: VENETOCLAX
     Dosage: DATE OF LAST DOSE PRIOR TO SAE ON 16 JAN 2020
     Route: 048
     Dates: start: 20200112
  5. CYTARABINE. [Concomitant]
     Active Substance: CYTARABINE
     Indication: ACUTE MYELOID LEUKAEMIA
     Dosage: DAYS 1 TO 21; LAST DOSE ON 20 JAN 2020
     Route: 048
     Dates: start: 20200110
  6. CLADRIBINE. [Concomitant]
     Active Substance: CLADRIBINE
     Indication: ACUTE MYELOID LEUKAEMIA
     Dosage: DAYS 1 TO 5; LAST DOSE ON 12 JAN 2020
     Route: 042
     Dates: start: 20200110

REACTIONS (1)
  - Gastrointestinal disorder [Not Recovered/Not Resolved]

NARRATIVE: CASE EVENT DATE: 20200131
